FAERS Safety Report 5636103-3 (Version None)
Quarter: 2008Q1

REPORT INFORMATION
  Report Type: 
  Country: None (occurrence: None)
  Receive Date: 20080225
  Receipt Date: 20080214
  Transmission Date: 20080703
  Serious: Yes (Other)
  Sender: FDA-Public Use
  Company Number: US-JNJFOC-20080204218

PATIENT
  Sex: Female
  Weight: 52.16 kg

DRUGS (4)
  1. DURAGESIC-100 [Suspect]
     Indication: BACK PAIN
     Route: 062
  2. TRAMADOL HCL [Concomitant]
     Indication: PAIN
     Route: 048
  3. XANAX [Concomitant]
     Indication: MUSCLE RELAXANT THERAPY
     Dosage: HALF OF A 2MG TABLET DAILY
     Route: 048
  4. PREMARIN [Concomitant]
     Indication: HORMONE REPLACEMENT THERAPY
     Route: 048

REACTIONS (5)
  - HYPERSOMNIA [None]
  - INADEQUATE ANALGESIA [None]
  - INAPPROPRIATE SCHEDULE OF DRUG ADMINISTRATION [None]
  - ROAD TRAFFIC ACCIDENT [None]
  - THERAPY CESSATION [None]
